FAERS Safety Report 11124778 (Version 1)
Quarter: 2015Q2

REPORT INFORMATION
  Report Type: Spontaneous
  Country: GB (occurrence: None)
  Receive Date: 20150518
  Receipt Date: 20150518
  Transmission Date: 20150821
  Serious: Yes (Other)
  Sender: FDA-Public Use
  Company Number: GB-DEXPHARM-20150311

PATIENT
  Age: 64 Year
  Sex: Male

DRUGS (2)
  1. OMEPRAZOLE CAPSULE [Suspect]
     Active Substance: OMEPRAZOLE
     Indication: GASTROOESOPHAGEAL REFLUX DISEASE
     Route: 048
  2. GAVISCON ADVANCED [Concomitant]

REACTIONS (1)
  - Chronic kidney disease [None]
